FAERS Safety Report 7156394-X (Version None)
Quarter: 2010Q4

REPORT INFORMATION
  Report Type: 
  Country: None (occurrence: None)
  Receive Date: 20101214
  Receipt Date: 20101203
  Transmission Date: 20110411
  Serious: Yes (Death, Other)
  Sender: FDA-Public Use
  Company Number: JP-ROCHE-740307

PATIENT
  Age: 35 Year
  Sex: Male

DRUGS (4)
  1. AVASTIN [Suspect]
     Indication: LUNG ADENOCARCINOMA RECURRENT
     Route: 041
     Dates: start: 20091215, end: 20091201
  2. ALIMTA [Concomitant]
     Route: 041
     Dates: start: 20091201, end: 20091201
  3. OXYCODONE HYDROCHLORIDE [Concomitant]
  4. DEXAMETHASONE [Concomitant]

REACTIONS (2)
  - DISEASE PROGRESSION [None]
  - EPISTAXIS [None]
